FAERS Safety Report 17453690 (Version 1)
Quarter: 2020Q1

REPORT INFORMATION
  Report Type: Spontaneous
  Country: US (occurrence: US)
  Receive Date: 20200224
  Receipt Date: 20200224
  Transmission Date: 20200409
  Serious: No
  Sender: FDA-Public Use
  Company Number: US-VYERA PHARMACEUTICALS, LLC-2019VYE00010

PATIENT
  Sex: Female

DRUGS (10)
  1. SULFADIAZINE. [Concomitant]
     Active Substance: SULFADIAZINE
  2. HYDROXYZINE HYDROCHLORIDE. [Concomitant]
     Active Substance: HYDROXYZINE HYDROCHLORIDE
  3. LEVOTHYROXINE. [Concomitant]
     Active Substance: LEVOTHYROXINE
  4. PREDNISONE. [Concomitant]
     Active Substance: PREDNISONE
  5. FAMOTIDINE. [Concomitant]
     Active Substance: FAMOTIDINE
  6. PREDNISOLONE OPHTHALMIC SUSPENSION [Concomitant]
  7. DARAPRIM [Suspect]
     Active Substance: PYRIMETHAMINE
     Indication: EYE INFECTION TOXOPLASMAL
     Dosage: 25 MG, 2X/DAY
     Route: 048
     Dates: start: 20190223
  8. ALENDRONATE [Concomitant]
     Active Substance: ALENDRONATE SODIUM
  9. MELOXICAM. [Concomitant]
     Active Substance: MELOXICAM
  10. ACYCLOVIR. [Concomitant]
     Active Substance: ACYCLOVIR

REACTIONS (1)
  - Insomnia [Unknown]
